FAERS Safety Report 23661440 (Version 1)
Quarter: 2024Q1

REPORT INFORMATION
  Report Type: Report from Study
  Country: US (occurrence: US)
  Receive Date: 20240322
  Receipt Date: 20240322
  Transmission Date: 20240410
  Serious: Yes (Other)
  Sender: FDA-Public Use
  Company Number: US-ABBVIE-5688179

PATIENT
  Sex: Female

DRUGS (2)
  1. HUMIRA [Suspect]
     Active Substance: ADALIMUMAB
     Indication: Psoriatic arthropathy
     Dosage: LAST ADMIN DATE: 2023
     Route: 058
     Dates: start: 20231101
  2. HUMIRA [Suspect]
     Active Substance: ADALIMUMAB
     Route: 058
     Dates: start: 2024

REACTIONS (4)
  - Small intestinal obstruction [Unknown]
  - Vomiting [Unknown]
  - Constipation [Unknown]
  - Arthralgia [Unknown]
